FAERS Safety Report 6061768-4 (Version None)
Quarter: 2009Q1

REPORT INFORMATION
  Report Type: 
  Country: None (occurrence: None)
  Receive Date: 20090202
  Receipt Date: 20090129
  Transmission Date: 20090719
  Serious: Yes (Other)
  Sender: FDA-Public Use
  Company Number: ES-ASTRAZENECA-2009AC00473

PATIENT
  Age: 68 Year
  Sex: Male
  Weight: 65 kg

DRUGS (2)
  1. CASODEX [Suspect]
     Indication: PROSTATE CANCER
     Route: 048
     Dates: start: 20081110
  2. ZOLADEX [Suspect]
     Indication: PROSTATE CANCER
     Dosage: 10.8
     Route: 058
     Dates: start: 20081220

REACTIONS (1)
  - PSORIASIS [None]
